FAERS Safety Report 8004012-0 (Version None)
Quarter: 2011Q4

REPORT INFORMATION
  Report Type: 
  Country: None (occurrence: None)
  Receive Date: 20111222
  Receipt Date: 20111215
  Transmission Date: 20120403
  Serious: Yes (Other)
  Sender: FDA-Public Use
  Company Number: DE-GILEAD-2011-0048261

PATIENT
  Age: 49 Year
  Sex: Male

DRUGS (3)
  1. ADEFOVIR [Concomitant]
     Indication: HEPATITIS B
     Dosage: 10 MG, UNK
     Route: 048
     Dates: start: 20060101, end: 20100101
  2. LAMIVUDINE [Concomitant]
     Indication: HEPATITIS B
     Dosage: 100 MG, UNK
     Route: 048
     Dates: start: 20010101, end: 20110101
  3. VIREAD [Suspect]
     Indication: HEPATITIS B
     Dosage: 245 MG, UNK
     Route: 048
     Dates: start: 20100101

REACTIONS (2)
  - POLYNEUROPATHY [None]
  - ERECTILE DYSFUNCTION [None]
